FAERS Safety Report 7260865-5 (Version None)
Quarter: 2011Q1

REPORT INFORMATION
  Report Type: 
  Country: None (occurrence: None)
  Receive Date: 20110130
  Receipt Date: 20101226
  Transmission Date: 20110831
  Serious: No
  Sender: FDA-Public Use
  Company Number: US-ABBOTT-10P-163-0693623-00

PATIENT
  Age: 52 Year
  Sex: Female

DRUGS (9)
  1. FOLIC ACID [Concomitant]
     Indication: RHEUMATOID ARTHRITIS
  2. CELEXA [Concomitant]
     Indication: ANXIETY
  3. LOSARTAN/HYDROCHLOORTHIAZIDE [Concomitant]
     Indication: HYPERTENSION
     Dosage: 100/25 MG
  4. METFORMIN [Concomitant]
     Indication: TYPE 2 DIABETES MELLITUS
  5. METHOTREXATE [Concomitant]
     Indication: RHEUMATOID ARTHRITIS
     Dosage: EVERY FRIDAY
  6. HUMIRA [Suspect]
     Indication: RHEUMATOID ARTHRITIS
     Dates: start: 20100701
  7. TRAZODONE HCL [Concomitant]
     Indication: INSOMNIA
  8. GLIPIZIDE [Concomitant]
     Indication: PRODUCT USED FOR UNKNOWN INDICATION
  9. MULTI-VITAMIN [Concomitant]
     Indication: PRODUCT USED FOR UNKNOWN INDICATION

REACTIONS (1)
  - NASOPHARYNGITIS [None]
